FAERS Safety Report 6258860-8 (Version None)
Quarter: 2009Q3

REPORT INFORMATION
  Report Type: 
  Country: None (occurrence: None)
  Receive Date: 20090702
  Receipt Date: 20090625
  Transmission Date: 20100115
  Serious: Yes (Hospitalization)
  Sender: FDA-Public Use
  Company Number: CERZ-1000729

PATIENT
  Age: 73 Year
  Sex: Female

DRUGS (1)
  1. CEREZYME [Suspect]
     Indication: GAUCHER'S DISEASE
     Dosage: 1600 U, Q2W, INTRAVENOUS
     Route: 042

REACTIONS (2)
  - HAEMODIALYSIS [None]
  - RENAL FAILURE CHRONIC [None]
